FAERS Safety Report 8366096-X (Version None)
Quarter: 2012Q2

REPORT INFORMATION
  Report Type: 
  Country: None (occurrence: None)
  Receive Date: 20120516
  Receipt Date: 20120516
  Transmission Date: 20120825
  Serious: Yes (Other)
  Sender: FDA-Public Use
  Company Number: None

PATIENT
  Sex: Female
  Weight: 68.0396 kg

DRUGS (1)
  1. ATORVASTATIN 40 MG RANBAXY [Suspect]
     Indication: BLOOD CHOLESTEROL INCREASED
     Dosage: 20 MG 1 A DAY
     Dates: start: 20120315, end: 20120415

REACTIONS (3)
  - PRURITUS [None]
  - INSOMNIA [None]
  - PRODUCT SUBSTITUTION ISSUE [None]
